FAERS Safety Report 9603731 (Version 10)
Quarter: 2015Q1

REPORT INFORMATION
  Report Type: Report from Study
  Country: AU (occurrence: AU)
  Receive Date: 20131007
  Receipt Date: 20150116
  Transmission Date: 20150721
  Serious: Yes (Life-Threatening, Hospitalization)
  Sender: FDA-Public Use
  Company Number: AU-ROCHE-1226312

PATIENT
  Age: 34 Year
  Sex: Female
  Weight: 52 kg

DRUGS (29)
  1. MEROPENEM. [Concomitant]
     Active Substance: MEROPENEM
     Dosage: DOSE: 3000 GRAM/GM
     Route: 065
     Dates: start: 20130514, end: 20130523
  2. IBUPROFEN. [Concomitant]
     Active Substance: IBUPROFEN
     Route: 065
     Dates: start: 20130512, end: 20130514
  3. CALCIUM CARBONATE. [Concomitant]
     Active Substance: CALCIUM CARBONATE
     Dosage: TWO/TAB
     Route: 065
     Dates: start: 20130514, end: 20130514
  4. DOCETAXEL. [Concomitant]
     Active Substance: DOCETAXEL
     Route: 065
     Dates: start: 20130502, end: 20130502
  5. AZITHROMYCIN [Concomitant]
     Active Substance: AZITHROMYCIN ANHYDROUS
     Route: 065
     Dates: start: 20130514, end: 20130520
  6. PALONOSETRON HYDROCHLORIDE [Concomitant]
     Active Substance: PALONOSETRON HYDROCHLORIDE
     Route: 065
     Dates: start: 20130502
  7. GASTROGEL (AUSTRALIA) [Concomitant]
     Dosage: DOSE: 20 MLS/TBL
     Route: 065
     Dates: start: 20130508, end: 20130510
  8. VANCOMYCIN [Concomitant]
     Active Substance: VANCOMYCIN
     Dosage: DOSE: 2000 GM/GM
     Route: 065
     Dates: start: 20130511, end: 20130513
  9. VORICONAZOLE. [Concomitant]
     Active Substance: VORICONAZOLE
     Route: 065
     Dates: start: 20130514, end: 20130514
  10. HYDROCORTISONE. [Concomitant]
     Active Substance: HYDROCORTISONE
     Dosage: DOSE: 100 MG/MG
     Route: 065
     Dates: start: 20130514, end: 20130519
  11. SALINE NEBULIZER [Concomitant]
     Route: 065
     Dates: start: 20130513, end: 20130513
  12. VORICONAZOLE. [Concomitant]
     Active Substance: VORICONAZOLE
     Route: 065
     Dates: start: 20130515, end: 20130515
  13. MAGNESIUM ACETATE [Concomitant]
     Active Substance: MAGNESIUM ACETATE
     Route: 065
     Dates: start: 20130515, end: 20130515
  14. PREDNISOLONE. [Concomitant]
     Active Substance: PREDNISOLONE
     Route: 065
     Dates: start: 20130520, end: 20130520
  15. PREDNISOLONE. [Concomitant]
     Active Substance: PREDNISOLONE
     Route: 065
     Dates: start: 20130522, end: 20130522
  16. TRASTUZUMAB [Suspect]
     Active Substance: TRASTUZUMAB
     Indication: BREAST CANCER
     Dosage: DATE OF LAST DOSE PRIOR TO SAE ON 02/MAY/2013
     Route: 058
     Dates: start: 20130502, end: 20130606
  17. POTASSIUM CHLORIDE. [Concomitant]
     Active Substance: POTASSIUM CHLORIDE
     Dosage: FOUR TABLETS
     Route: 065
     Dates: start: 20130512, end: 20130514
  18. POTASSIUM ACETATE. [Concomitant]
     Active Substance: POTASSIUM ACETATE
     Dosage: DOSE: 10/MMOL/L
     Route: 065
     Dates: start: 20130514, end: 20130514
  19. FENTANYL. [Concomitant]
     Active Substance: FENTANYL
     Route: 065
     Dates: start: 20130517, end: 20130518
  20. PREDNISOLONE. [Concomitant]
     Active Substance: PREDNISOLONE
     Route: 065
     Dates: start: 20130519, end: 20130519
  21. DOCETAXEL. [Suspect]
     Active Substance: DOCETAXEL
     Indication: PRODUCT USED FOR UNKNOWN INDICATION
     Route: 065
     Dates: start: 20130502, end: 20130502
  22. CARBOPLATIN. [Suspect]
     Active Substance: CARBOPLATIN
     Indication: PRODUCT USED FOR UNKNOWN INDICATION
     Route: 065
     Dates: start: 20130502, end: 20130502
  23. FRUSEMIDE [Concomitant]
     Active Substance: FUROSEMIDE
     Dosage: DOSE: 20 MG/MG
     Route: 065
     Dates: start: 20130514, end: 20130518
  24. PREDNISOLONE. [Concomitant]
     Active Substance: PREDNISOLONE
     Route: 065
     Dates: start: 20130521, end: 20130521
  25. VANCOMYCIN [Concomitant]
     Active Substance: VANCOMYCIN
     Dosage: DOSE: 1500 GM/GM
     Route: 065
     Dates: start: 20130509, end: 20130510
  26. VORICONAZOLE. [Concomitant]
     Active Substance: VORICONAZOLE
     Route: 065
     Dates: start: 20130515, end: 20130524
  27. PANTOPRAZOLE [Concomitant]
     Active Substance: PANTOPRAZOLE SODIUM
     Route: 065
     Dates: start: 20130515, end: 20130522
  28. RANITIDIN [Concomitant]
     Active Substance: RANITIDINE HYDROCHLORIDE
     Dosage: DOSE: 50 MG/MG
     Route: 065
     Dates: start: 20130509, end: 20130509
  29. CARBOPLATIN. [Concomitant]
     Active Substance: CARBOPLATIN
     Route: 065
     Dates: start: 20130502, end: 20130502

REACTIONS (2)
  - Stress cardiomyopathy [Recovered/Resolved]
  - Neutropenic sepsis [Recovered/Resolved]

NARRATIVE: CASE EVENT DATE: 20130507
